FAERS Safety Report 9358910 (Version 1)
Quarter: 2013Q2

REPORT INFORMATION
  Report Type: Spontaneous
  Country: CN (occurrence: None)
  Receive Date: 20130617
  Receipt Date: 20130617
  Transmission Date: 20140414
  Serious: Yes (Other)
  Sender: FDA-Public Use
  Company Number: FK201301981

PATIENT
  Age: 75 None
  Sex: Female

DRUGS (1)
  1. INTRALIPID [Suspect]
     Indication: MEDICAL DIET
     Route: 041
     Dates: start: 20120509, end: 20120509

REACTIONS (3)
  - Chills [None]
  - Hyperpyrexia [None]
  - Blood pressure decreased [None]
